FAERS Safety Report 23394898 (Version 1)
Quarter: 2024Q1

REPORT INFORMATION
  Report Type: 
  Country: AU (occurrence: AU)
  Receive Date: 20240112
  Receipt Date: 20240112
  Transmission Date: 20240410
  Serious: Yes (Other)
  Sender: FDA-Public Use
  Company Number: AU-CELLTRION INC.-2024AU000437

PATIENT

DRUGS (6)
  1. RITUXIMAB [Suspect]
     Active Substance: RITUXIMAB
     Indication: Product used for unknown indication
  2. CARBOPLATIN [Suspect]
     Active Substance: CARBOPLATIN
     Indication: Product used for unknown indication
  3. CISPLATIN [Suspect]
     Active Substance: CISPLATIN
     Indication: Product used for unknown indication
  4. CYTARABINE [Suspect]
     Active Substance: CYTARABINE
     Indication: Product used for unknown indication
  5. DEXAMETHASONE [Suspect]
     Active Substance: DEXAMETHASONE
     Indication: Product used for unknown indication
  6. VENETOCLAX [Suspect]
     Active Substance: VENETOCLAX
     Indication: Product used for unknown indication

REACTIONS (2)
  - Richter^s syndrome [Unknown]
  - Therapeutic product effect decreased [Unknown]
